FAERS Safety Report 8273258-9 (Version None)
Quarter: 2012Q2

REPORT INFORMATION
  Report Type: 
  Country: None (occurrence: None)
  Receive Date: 20120411
  Receipt Date: 20120330
  Transmission Date: 20120825
  Serious: Yes (Other)
  Sender: FDA-Public Use
  Company Number: JP-PFIZER INC-2012004602

PATIENT
  Age: 72 Year
  Sex: Male

DRUGS (6)
  1. CARVEDILOL [Concomitant]
     Dosage: UNK
  2. FAMOTIDINE [Concomitant]
     Dosage: UNK
     Dates: start: 20111109, end: 20120203
  3. SELTOUCH [Concomitant]
     Dosage: UNK
     Dates: start: 20111202, end: 20120203
  4. CELEBREX [Suspect]
     Dosage: 100 MG, 2X/DAY
     Route: 048
     Dates: start: 20111109, end: 20120203
  5. PRORENAL [Suspect]
     Dosage: 5 UG, 3X/DAY
     Route: 048
     Dates: start: 20111202, end: 20120203
  6. LOXONIN [Concomitant]
     Dosage: UNK
     Dates: start: 20111109, end: 20120203

REACTIONS (2)
  - ARRHYTHMIA [None]
  - BLOOD PRESSURE INCREASED [None]
